FAERS Safety Report 9330786 (Version 1)
Quarter: 2013Q2

REPORT INFORMATION
  Report Type: Spontaneous
  Country: US (occurrence: None)
  Receive Date: 20130604
  Receipt Date: 20130604
  Transmission Date: 20140414
  Serious: Yes (Other)
  Sender: FDA-Public Use
  Company Number: None

PATIENT
  Age: 8 Year
  Sex: Male
  Weight: 36.29 kg

DRUGS (1)
  1. SINGULAIR [Suspect]
     Indication: ASTHMA
     Dosage: 1 TABLET, QD, PO
     Route: 048
     Dates: start: 20080101, end: 20130507

REACTIONS (7)
  - Personality change [None]
  - Suicidal ideation [None]
  - Morbid thoughts [None]
  - Obsessive-compulsive disorder [None]
  - Agitation [None]
  - Sleep disorder [None]
  - Anxiety [None]
